FAERS Safety Report 10961782 (Version 2)
Quarter: 2015Q2

REPORT INFORMATION
  Report Type: Spontaneous
  Country: GB (occurrence: GB)
  Receive Date: 20150327
  Receipt Date: 20150420
  Transmission Date: 20150821
  Serious: Yes (Death)
  Sender: FDA-Public Use
  Company Number: GB-PFIZER INC-2015108746

PATIENT

DRUGS (1)
  1. XALKORI [Suspect]
     Active Substance: CRIZOTINIB
     Indication: NEOPLASM MALIGNANT
     Dosage: 1 CYCLE
     Dates: start: 20140201, end: 201403

REACTIONS (3)
  - Disease progression [Not Recovered/Not Resolved]
  - Death [Fatal]
  - Neoplasm malignant [Not Recovered/Not Resolved]
